FAERS Safety Report 5169935-9 (Version None)
Quarter: 2006Q4

REPORT INFORMATION
  Report Type: 
  Country: None (occurrence: None)
  Receive Date: 20061212
  Receipt Date: 20061201
  Transmission Date: 20070319
  Serious: Yes (Death, Hospitalization)
  Sender: FDA-Public Use
  Company Number: AR-JNJFOC-20061105815

PATIENT
  Age: 27 Year
  Sex: Male
  Weight: 70 kg

DRUGS (2)
  1. REMICADE [Suspect]
     Route: 042
  2. REMICADE [Suspect]
     Indication: ACUTE GRAFT VERSUS HOST DISEASE
     Route: 042

REACTIONS (3)
  - ACUTE GRAFT VERSUS HOST DISEASE [None]
  - GASTROINTESTINAL HAEMORRHAGE [None]
  - SEPSIS [None]
